FAERS Safety Report 16430626 (Version 1)
Quarter: 2019Q2

REPORT INFORMATION
  Report Type: Spontaneous
  Country: SE (occurrence: SE)
  Receive Date: 20190614
  Receipt Date: 20190614
  Transmission Date: 20190711
  Serious: Yes (Hospitalization, Other)
  Sender: FDA-Public Use
  Company Number: SE-ASTRAZENECA-2019SE84377

PATIENT
  Age: 77 Year
  Sex: Male

DRUGS (11)
  1. OXYNORM [Concomitant]
     Active Substance: OXYCODONE HYDROCHLORIDE
  2. TROMBYL [Concomitant]
     Active Substance: ASPIRIN
  3. ALVEDON FORTE [Concomitant]
  4. ROSUVASTATIN. [Suspect]
     Active Substance: ROSUVASTATIN
     Route: 048
     Dates: start: 20190404, end: 20190508
  5. ZOLPIDEM [Concomitant]
     Active Substance: ZOLPIDEM\ZOLPIDEM TARTRATE
  6. BRILIQUE [Concomitant]
     Active Substance: TICAGRELOR
  7. METOPROLOL. [Concomitant]
     Active Substance: METOPROLOL
  8. ATORVASTATIN [Suspect]
     Active Substance: ATORVASTATIN
     Route: 065
     Dates: end: 201904
  9. NITROLINGUAL [Concomitant]
     Active Substance: NITROGLYCERIN
  10. SUSCARD [Concomitant]
     Active Substance: NITROGLYCERIN
  11. FOLACIN [Concomitant]

REACTIONS (3)
  - Myalgia [Recovering/Resolving]
  - Acute kidney injury [Recovering/Resolving]
  - Rhabdomyolysis [Recovering/Resolving]

NARRATIVE: CASE EVENT DATE: 20190508
